FAERS Safety Report 6825827-8 (Version None)
Quarter: 2010Q3

REPORT INFORMATION
  Report Type: 
  Country: None (occurrence: None)
  Receive Date: 20100708
  Receipt Date: 20100708
  Transmission Date: 20110219
  Serious: No
  Sender: FDA-Public Use
  Company Number: None

PATIENT
  Age: 49 Year
  Sex: Male
  Weight: 90.7194 kg

DRUGS (1)
  1. OMEPRAZOLE [Suspect]
     Indication: GASTROOESOPHAGEAL REFLUX DISEASE
     Dosage: OMEPRAZOLE 20MG 1 PO Q HR ORAL
     Route: 048
     Dates: start: 20100628

REACTIONS (4)
  - ERYTHEMA [None]
  - FLUSHING [None]
  - PRODUCT SUBSTITUTION ISSUE [None]
  - PRURITUS [None]
